FAERS Safety Report 24529929 (Version 1)
Quarter: 2024Q4

REPORT INFORMATION
  Report Type: Spontaneous
  Country: US (occurrence: None)
  Receive Date: 20241018
  Receipt Date: 20241018
  Transmission Date: 20250115
  Serious: Yes (Life-Threatening)
  Sender: Public
  Company Number: None

PATIENT
  Age: 36 Year
  Sex: Female
  Weight: 87.5 kg

DRUGS (3)
  1. RENFLEXIS [Suspect]
     Active Substance: INFLIXIMAB-ABDA
     Indication: Colitis ulcerative
     Dosage: OTHER FREQUENCY : EVERY 8 WEEKS;?
     Route: 042
     Dates: start: 20240608, end: 20240801
  2. REMICADE [Suspect]
     Active Substance: INFLIXIMAB
  3. AZATHIOPRINE [Suspect]
     Active Substance: AZATHIOPRINE

REACTIONS (5)
  - Anaphylactic reaction [None]
  - Crohn^s disease [None]
  - Treatment noncompliance [None]
  - Immune-mediated adverse reaction [None]
  - Drug ineffective [None]

NARRATIVE: CASE EVENT DATE: 20240801
